FAERS Safety Report 8566657 (Version 3)
Quarter: 2014Q4

REPORT INFORMATION
  Report Type: Report from Study
  Country: US (occurrence: US)
  Receive Date: 20120517
  Receipt Date: 20141010
  Transmission Date: 20150529
  Serious: Yes (Death)
  Sender: FDA-Public Use
  Company Number: US-ROCHE-1069702

PATIENT
  Sex: Male

DRUGS (3)
  1. ACTIVASE [Suspect]
     Active Substance: ALTEPLASE
     Indication: PULMONARY EMBOLISM
     Dosage: OVER 2 HOUR INFUSION
     Route: 042
     Dates: start: 20120124
  2. ACTIVASE [Suspect]
     Active Substance: ALTEPLASE
     Indication: PULMONARY EMBOLISM
  3. ACTIVASE [Suspect]
     Active Substance: ALTEPLASE
     Indication: CEREBRAL ARTERY EMBOLISM

REACTIONS (1)
  - Death [Fatal]
